FAERS Safety Report 4926237-0 (Version None)
Quarter: 2006Q1

REPORT INFORMATION
  Report Type: 
  Country: None (occurrence: None)
  Receive Date: 20060228
  Receipt Date: 20051213
  Transmission Date: 20060701
  Serious: No
  Sender: FDA-Public Use
  Company Number: US-GLAXOSMITHKLINE-A0585716A

PATIENT
  Age: 30 Year
  Sex: Female

DRUGS (3)
  1. LAMICTAL [Suspect]
     Indication: EPILEPSY
     Dosage: 25MG SEE DOSAGE TEXT
     Route: 048
  2. PHENOBARBITAL TAB [Concomitant]
     Route: 065
  3. KLONOPIN [Concomitant]

REACTIONS (2)
  - MOUTH ULCERATION [None]
  - RASH GENERALISED [None]
